FAERS Safety Report 5863839-1 (Version None)
Quarter: 2008Q3

REPORT INFORMATION
  Report Type: 
  Country: None (occurrence: None)
  Receive Date: 20080827
  Receipt Date: 20080814
  Transmission Date: 20090109
  Serious: Yes (Other)
  Sender: FDA-Public Use
  Company Number: 8013431

PATIENT
  Sex: Male
  Weight: 13.7 kg

DRUGS (6)
  1. KEPPRA [Suspect]
     Dosage: 1000 MG/D TRP
     Route: 064
     Dates: end: 20050201
  2. KEPPRA [Suspect]
     Dosage: 1500 MG/D TRP
     Route: 064
     Dates: start: 20050201, end: 20050712
  3. KEPPRA [Suspect]
     Dosage: 20 MG/D TRP
     Route: 064
     Dates: end: 20050401
  4. SEROQUEL [Suspect]
     Dosage: 100 MG /D TRP
     Route: 064
     Dates: end: 20050712
  5. ASPIRIN [Suspect]
     Dosage: TRP
     Route: 064
     Dates: end: 20050712
  6. VITAMIN TAB [Suspect]
     Dosage: TRP
     Route: 064
     Dates: end: 20050712

REACTIONS (7)
  - CAESAREAN SECTION [None]
  - DEVELOPMENTAL DELAY [None]
  - MATERNAL DRUGS AFFECTING FOETUS [None]
  - MOTOR DYSFUNCTION [None]
  - PLACENTA PRAEVIA [None]
  - PREMATURE BABY [None]
  - SPEECH DISORDER DEVELOPMENTAL [None]
